FAERS Safety Report 23593364 (Version 1)
Quarter: 2024Q1

REPORT INFORMATION
  Report Type: Spontaneous
  Country: CA (occurrence: CA)
  Receive Date: 20240304
  Receipt Date: 20240304
  Transmission Date: 20240410
  Serious: Yes (Life-Threatening, Other)
  Sender: FDA-Public Use
  Company Number: CA-AstraZeneca-2024A047829

PATIENT
  Sex: Female
  Weight: 79 kg

DRUGS (1)
  1. TRASTUZUMAB DERUXTECAN [Suspect]
     Active Substance: TRASTUZUMAB DERUXTECAN
     Indication: HER2 positive breast cancer
     Dosage: 356 MG, ONCE EVERY 2 WK
     Route: 042

REACTIONS (1)
  - Pulmonary thrombosis [Recovering/Resolving]
